FAERS Safety Report 4384489-2 (Version None)
Quarter: 2004Q2

REPORT INFORMATION
  Report Type: 
  Country: None (occurrence: None)
  Receive Date: 20040624
  Receipt Date: 20030919
  Transmission Date: 20050107
  Serious: Yes (Other)
  Sender: FDA-Public Use
  Company Number: US-MERCK-0309USA02383

PATIENT
  Age: 51 Year
  Sex: Male
  Weight: 68 kg

DRUGS (3)
  1. VIOXX [Suspect]
     Route: 048
  2. VIOXX [Suspect]
     Route: 048
  3. VIOXX [Suspect]
     Route: 048

REACTIONS (19)
  - ANAEMIA MACROCYTIC [None]
  - ARTHRALGIA [None]
  - BACK PAIN [None]
  - BRONCHITIS [None]
  - CONVULSION [None]
  - COUGH [None]
  - DYSPEPSIA [None]
  - EMOTIONAL DISTRESS [None]
  - EXOSTOSIS [None]
  - HEADACHE [None]
  - HYPERKERATOSIS [None]
  - KERATOCONJUNCTIVITIS SICCA [None]
  - NEUTROPENIA [None]
  - ONYCHOMYCOSIS [None]
  - OVERDOSE [None]
  - PHARYNGOLARYNGEAL PAIN [None]
  - PRIAPISM [None]
  - TOOTHACHE [None]
  - URINARY INCONTINENCE [None]
